FAERS Safety Report 7709071-8 (Version None)
Quarter: 2011Q3

REPORT INFORMATION
  Report Type: 
  Country: None (occurrence: None)
  Receive Date: 20110825
  Receipt Date: 20110816
  Transmission Date: 20111222
  Serious: Yes (Other)
  Sender: FDA-Public Use
  Company Number: US-JNJFOC-20110808802

PATIENT
  Sex: Female
  Weight: 65.77 kg

DRUGS (10)
  1. MILK THISTLE [Concomitant]
     Indication: HEPATITIS B
     Route: 048
     Dates: start: 20080101
  2. CLONAZEPAM [Concomitant]
     Indication: PAIN
     Route: 048
  3. CYCLOBENZAPRINE [Concomitant]
     Indication: SLEEP DISORDER
     Route: 048
  4. VOLTAREN [Concomitant]
     Indication: ARTHRITIS
     Dosage: AS NEEDED
     Route: 061
     Dates: start: 20110101
  5. MELOXICAM [Concomitant]
     Indication: ARTHRITIS
     Route: 048
     Dates: start: 20090101
  6. ACETAMINOPHEN AND HYDROCODONE BITARTRATE [Concomitant]
     Indication: BREAKTHROUGH PAIN
     Dosage: 10 MG /325 MG
     Route: 048
  7. LYRICA [Concomitant]
     Indication: FIBROMYALGIA
     Route: 048
  8. DURAGESIC-100 [Suspect]
     Indication: PAIN
     Route: 062
     Dates: start: 20050101
  9. MILK THISTLE [Concomitant]
     Indication: HEPATIC STEATOSIS
     Route: 048
     Dates: start: 20080101
  10. CYMBALTA [Concomitant]
     Indication: FIBROMYALGIA
     Route: 048

REACTIONS (5)
  - INTERVERTEBRAL DISC PROTRUSION [None]
  - JOINT SWELLING [None]
  - HEPATITIS B [None]
  - FIBROMYALGIA [None]
  - HEPATIC STEATOSIS [None]
